FAERS Safety Report 4518946-2 (Version None)
Quarter: 2004Q4

REPORT INFORMATION
  Report Type: 
  Country: None (occurrence: None)
  Receive Date: 20041201
  Receipt Date: 20041119
  Transmission Date: 20050328
  Serious: Yes (Other)
  Sender: FDA-Public Use
  Company Number: AT-2004-035209

PATIENT
  Age: 23 Year
  Sex: Female
  Weight: 59 kg

DRUGS (1)
  1. YASMIN [Suspect]
     Indication: ORAL CONTRACEPTION
     Dosage: 1 TAB (S), 24/28 D, ORAL
     Route: 048
     Dates: start: 20040414

REACTIONS (1)
  - CERVICAL DYSPLASIA [None]
